FAERS Safety Report 16627137 (Version 1)
Quarter: 2019Q3

REPORT INFORMATION
  Report Type: Spontaneous
  Country: ES (occurrence: ES)
  Receive Date: 20190724
  Receipt Date: 20190724
  Transmission Date: 20191004
  Serious: Yes (Life-Threatening, Hospitalization)
  Sender: FDA-Public Use
  Company Number: ES-TEVA-2019-ES-1082077

PATIENT
  Age: 77 Year
  Sex: Female
  Weight: 110 kg

DRUGS (7)
  1. IPRATROPIO BROMURO (1067BR) [Suspect]
     Active Substance: IPRATROPIUM BROMIDE
     Indication: BRONCHIAL HYPERREACTIVITY
     Dosage: 500 MILLIGRAM
     Route: 055
     Dates: start: 20190606
  2. OMEPRAZOL (2141A) [Concomitant]
     Active Substance: OMEPRAZOLE
     Indication: GASTRITIS PROPHYLAXIS
     Dosage: 20 MILLIGRAM
     Route: 048
     Dates: start: 20190606
  3. NOLOTIL 0.4 G/ML SOLUCION INYECTABLE, 5 AMPOLLAS DE 5 ML [Suspect]
     Active Substance: METAMIZOLE MAGNESIUM
     Indication: PAIN
     Dosage: 2 GRAM
     Route: 042
     Dates: start: 20190523, end: 20190608
  4. TRIAMCINOLONA ACETONIDO (1171AD) [Concomitant]
     Indication: RASH ERYTHEMATOUS
     Route: 061
     Dates: start: 20190606
  5. MESNA (1078A) [Suspect]
     Active Substance: MESNA
     Dosage: 600 MILLIGRAM
     Route: 055
     Dates: start: 20190606, end: 20190608
  6. ZINC OXIDO (138OX) [Concomitant]
     Indication: RASH ERYTHEMATOUS
     Route: 061
     Dates: start: 20190606
  7. BISOPROLOL (2328A) [Suspect]
     Active Substance: BISOPROLOL
     Indication: HYPERTENSION
     Dosage: 5 MILLIGRAM
     Route: 048
     Dates: start: 20190606, end: 20190608

REACTIONS (1)
  - Anaphylactic shock [Recovered/Resolved]

NARRATIVE: CASE EVENT DATE: 20190608
